FAERS Safety Report 22210483 (Version 1)
Quarter: 2023Q2

REPORT INFORMATION
  Report Type: Spontaneous
  Country: US (occurrence: US)
  Receive Date: 20230414
  Receipt Date: 20230414
  Transmission Date: 20230722
  Serious: Yes (Other)
  Sender: FDA-Public Use
  Company Number: US-IGSA-BIG0022953

PATIENT
  Age: 69 Year
  Sex: Female

DRUGS (7)
  1. HUMAN IMMUNOGLOBULIN G [Suspect]
     Active Substance: HUMAN IMMUNOGLOBULIN G
     Indication: Graft versus host disease
     Dosage: UNK UNK, Q.M.T.
     Route: 042
  2. HUMAN IMMUNOGLOBULIN G [Suspect]
     Active Substance: HUMAN IMMUNOGLOBULIN G
     Indication: Thrombocytopenia
  3. HUMAN IMMUNOGLOBULIN G [Suspect]
     Active Substance: HUMAN IMMUNOGLOBULIN G
     Indication: Hypertransaminasaemia
  4. PREDNISONE [Suspect]
     Active Substance: PREDNISONE
  5. SIROLIMUS [Suspect]
     Active Substance: SIROLIMUS
  6. RITUXIMAB [Suspect]
     Active Substance: RITUXIMAB
     Dosage: UNK UNK, Q.2WK.
  7. BELUMOSUDIL [Suspect]
     Active Substance: BELUMOSUDIL
     Dosage: UNK UNK, Q.2WK.

REACTIONS (2)
  - Osteonecrosis [Recovered/Resolved]
  - Hip arthroplasty [Recovered/Resolved]
